FAERS Safety Report 9078813 (Version 1)
Quarter: 2013Q1

REPORT INFORMATION
  Report Type: Report from Study
  Country: US (occurrence: US)
  Receive Date: 20130130
  Receipt Date: 20130130
  Transmission Date: 20140127
  Serious: No
  Sender: FDA-Public Use
  Company Number: US-ABBOTT-12P-163-0976871-00

PATIENT
  Age: 27 Year
  Sex: Female

DRUGS (3)
  1. HUMIRA [Suspect]
     Indication: PSORIASIS
     Dates: start: 20120820, end: 20120820
  2. HUMIRA [Suspect]
     Dates: start: 20120827
  3. UNKNOWN MEDICATION [Concomitant]
     Indication: PSORIASIS
     Route: 061

REACTIONS (5)
  - Papule [Not Recovered/Not Resolved]
  - Papule [Unknown]
  - Papule [Unknown]
  - Injection site erythema [Unknown]
  - Injection site pruritus [Unknown]
